FAERS Safety Report 21907928 (Version 1)
Quarter: 2023Q1

REPORT INFORMATION
  Report Type: Spontaneous
  Country: FR (occurrence: FR)
  Receive Date: 20230125
  Receipt Date: 20230125
  Transmission Date: 20230418
  Serious: Yes (Congenital Anomaly)
  Sender: FDA-Public Use
  Company Number: None

PATIENT
  Sex: Female
  Weight: 4.15 kg

DRUGS (4)
  1. ONDANSETRON [Suspect]
     Active Substance: ONDANSETRON
     Indication: Foetal exposure during pregnancy
     Dosage: UNK (MATERNAL DOSE: 3 DOSAGE FORM)
     Route: 064
     Dates: start: 2019, end: 2019
  2. METOCLOPRAMIDE [Suspect]
     Active Substance: METOCLOPRAMIDE
     Indication: Foetal exposure during pregnancy
     Dosage: UNK (MATERNAL DOSE: NP)
     Route: 065
     Dates: start: 20190208, end: 20190210
  3. CHLORPROMAZINE [Suspect]
     Active Substance: CHLORPROMAZINE
     Indication: Foetal exposure during pregnancy
     Dosage: UNK (MATERNAL DOSE: NP)
     Route: 064
     Dates: start: 20190210, end: 20190213
  4. DOXYLAMINE SUCCINATE [Suspect]
     Active Substance: DOXYLAMINE SUCCINATE
     Indication: Foetal exposure during pregnancy
     Dosage: UNK (MATERNAL DOSE: 1 DOSAGE FORM)
     Route: 064
     Dates: start: 2019, end: 20190919

REACTIONS (1)
  - Otospondylomegaepiphyseal dysplasia [Recovering/Resolving]

NARRATIVE: CASE EVENT DATE: 20190917
